FAERS Safety Report 12516912 (Version 1)
Quarter: 2016Q2

REPORT INFORMATION
  Report Type: Spontaneous
  Country: PT (occurrence: PT)
  Receive Date: 20160630
  Receipt Date: 20160630
  Transmission Date: 20160815
  Serious: Yes (Hospitalization)
  Sender: FDA-Public Use
  Company Number: PT-SUN PHARMACEUTICAL INDUSTRIES LTD-2016R1-119099

PATIENT
  Age: 54 Year
  Sex: Female

DRUGS (1)
  1. LITHIUM. [Suspect]
     Active Substance: LITHIUM
     Indication: PRODUCT USED FOR UNKNOWN INDICATION
     Route: 065

REACTIONS (14)
  - Catatonia [Recovering/Resolving]
  - Affect lability [Recovering/Resolving]
  - Confusional state [Recovering/Resolving]
  - Cardiac failure [Recovering/Resolving]
  - Seizure [Recovering/Resolving]
  - Toxicity to various agents [Recovering/Resolving]
  - Nervous system disorder [Recovering/Resolving]
  - Generalised tonic-clonic seizure [Recovering/Resolving]
  - Speech disorder [Recovering/Resolving]
  - Urinary incontinence [Recovering/Resolving]
  - Acute kidney injury [Recovering/Resolving]
  - Electrolyte imbalance [Recovering/Resolving]
  - Dysphoria [Recovering/Resolving]
  - Metabolic disorder [Recovering/Resolving]
